FAERS Safety Report 4376810-6 (Version None)
Quarter: 2004Q2

REPORT INFORMATION
  Report Type: 
  Country: None (occurrence: None)
  Receive Date: 20040608
  Receipt Date: 20040525
  Transmission Date: 20050107
  Serious: Yes (Hospitalization, Other)
  Sender: FDA-Public Use
  Company Number: US-JNJFOC-20040505987

PATIENT
  Age: 50 Year
  Sex: Female
  Weight: 127.0072 kg

DRUGS (8)
  1. REMICADE [Suspect]
     Indication: RHEUMATOID ARTHRITIS
     Dosage: INTRAVENOUS
     Route: 042
     Dates: start: 20010101, end: 20030101
  2. HUMALOG [Concomitant]
  3. GLUCOPHAGE [Concomitant]
  4. INSULIN N (INSULIN) [Concomitant]
  5. CELEBREX [Concomitant]
  6. MAVIK [Concomitant]
  7. GLYBURIDE [Concomitant]
  8. FOLIC ACID [Concomitant]

REACTIONS (1)
  - NON-HODGKIN'S LYMPHOMA [None]
